FAERS Safety Report 9520867 (Version 1)
Quarter: 2013Q1

REPORT INFORMATION
  Report Type: Spontaneous
  Country: US (occurrence: None)
  Receive Date: 20130305
  Receipt Date: 20130305
  Transmission Date: 20140127
  Serious: Yes (Hospitalization, Other)
  Sender: FDA-Public Use
  Company Number: 163-21880-12080042

PATIENT
  Age: 57 Year
  Sex: Male
  Weight: 91.17 kg

DRUGS (22)
  1. REVLIMID [Suspect]
     Indication: PLASMA CELL MYELOMA
     Dosage: 18.75 MG, 21 IN 28 D, PO
     Route: 048
     Dates: start: 201205
  2. FRAGMIN (HEPARIN-FRACTION, SODIUM SALT) [Concomitant]
  3. COLACE (DOCUSATE SODIUM) [Concomitant]
  4. SYNTHROID (LEVOTHYROXINE SODIUM) [Concomitant]
  5. MS CONTIN [Concomitant]
  6. OXYGEN (OXYGEN) [Concomitant]
  7. PROTONIX [Concomitant]
  8. COUMADIN (WARFARIN SODIUM) [Concomitant]
  9. ALBUTEROL MDI (SALBUTAMOL) [Concomitant]
  10. ATROPINE (ATROPINE) [Concomitant]
  11. LORAZEPAM (LORAZEPAM) [Concomitant]
  12. MORPHINE [Concomitant]
  13. ZOFRAN (ONDANSETRON HYDROCHLORIDE) [Concomitant]
  14. OXYCODONE (OXYCODONE) [Concomitant]
  15. SENNA [Concomitant]
  16. LASIX (FUROSEMIDE) [Concomitant]
  17. PREDNISONE )PREDNISONE) [Concomitant]
  18. SOLU-MEDROL (METHYLPREDISOLONE SODIUM SUCCFINATE) [Concomitant]
  19. ASPIRIN (ACETYLSALICYLIC ACID) [Concomitant]
  20. DUONEB (COMBIVENT) [Concomitant]
  21. LACTOBACILLUS (LACTOBACILLUS ACIDOPHILUS) [Concomitant]
  22. PANTOPRAZOLE (PANTOPRAZOLE) [Concomitant]

REACTIONS (1)
  - Device related sepsis [None]
